FAERS Safety Report 11822414 (Version 1)
Quarter: 2015Q4

REPORT INFORMATION
  Report Type: Spontaneous
  Country: NO (occurrence: NO)
  Receive Date: 20151210
  Receipt Date: 20151210
  Transmission Date: 20160305
  Serious: Yes (Other)
  Sender: FDA-Public Use
  Company Number: NO-PFIZER INC-2015436529

PATIENT
  Sex: Male

DRUGS (3)
  1. TENORMIN [Concomitant]
     Active Substance: ATENOLOL
     Dosage: UNK
  2. CORDARONE [Suspect]
     Active Substance: AMIODARONE HYDROCHLORIDE
     Dosage: 200 MG, UNK
     Route: 048
     Dates: start: 1996, end: 2000
  3. CORDARONE [Suspect]
     Active Substance: AMIODARONE HYDROCHLORIDE
     Dosage: 400 MG, UNK
     Route: 048
     Dates: start: 2000, end: 2003

REACTIONS (5)
  - Pain [Not Recovered/Not Resolved]
  - Seizure [Unknown]
  - Heart rate decreased [Recovered/Resolved]
  - Gastrointestinal disorder [Not Recovered/Not Resolved]
  - Bile duct obstruction [Not Recovered/Not Resolved]

NARRATIVE: CASE EVENT DATE: 2000
